FAERS Safety Report 15712749 (Version 1)
Quarter: 2018Q4

REPORT INFORMATION
  Report Type: Spontaneous
  Country: US (occurrence: US)
  Receive Date: 20181129
  Receipt Date: 20181129
  Transmission Date: 20190205
  Serious: Yes (Hospitalization)
  Sender: FDA-Public Use
  Company Number: None

PATIENT
  Age: 50 Year
  Sex: Female

DRUGS (1)
  1. OPSUMIT [Suspect]
     Active Substance: MACITENTAN
     Indication: PULMONARY HYPERTENSION
     Dates: start: 20161212

REACTIONS (5)
  - Unevaluable event [None]
  - Renal failure [None]
  - Abdominal pain [None]
  - Mental status changes [None]
  - Swelling [None]

NARRATIVE: CASE EVENT DATE: 20181112
